FAERS Safety Report 23393604 (Version 1)
Quarter: 2024Q1

REPORT INFORMATION
  Report Type: Spontaneous
  Country: CA (occurrence: CA)
  Receive Date: 20240111
  Receipt Date: 20240111
  Transmission Date: 20240410
  Serious: Yes (Death)
  Sender: FDA-Public Use
  Company Number: CA-PFIZER INC-202400005342

PATIENT
  Age: 65 Year
  Sex: Female
  Weight: 59 kg

DRUGS (15)
  1. CARBOPLATIN [Suspect]
     Active Substance: CARBOPLATIN
     Indication: Lung neoplasm malignant
     Dosage: UNK
     Route: 042
  2. IRINOTECAN HYDROCHLORIDE [Suspect]
     Active Substance: IRINOTECAN HYDROCHLORIDE
     Indication: Lung neoplasm malignant
     Dosage: UNK
     Route: 042
  3. ASCORBIC ACID [Concomitant]
     Active Substance: ASCORBIC ACID
  4. COQ10 + D3 [Concomitant]
  5. DIMENHYDRINATE [Concomitant]
     Active Substance: DIMENHYDRINATE
  6. DULCOLAX BALANCE [Concomitant]
     Active Substance: POLYETHYLENE GLYCOL 3350
  7. ELIQUIS [Concomitant]
     Active Substance: APIXABAN
  8. GRAVOL [Concomitant]
     Active Substance: DIMENHYDRINATE
  9. HYDROMORPHONE [Concomitant]
     Active Substance: HYDROMORPHONE
  10. LORAZEPAM [Concomitant]
     Active Substance: LORAZEPAM
     Route: 065
  11. MOVANTIK [Concomitant]
     Active Substance: NALOXEGOL OXALATE
  12. POLYETHYLENE GLYCOLS [Concomitant]
     Active Substance: POLYETHYLENE GLYCOLS
  13. SODIUM CHLORIDE [Concomitant]
     Active Substance: SODIUM CHLORIDE
  14. TUMS [Concomitant]
     Active Substance: CALCIUM CARBONATE
  15. VITAMIN B COMPLEX WITH C [Concomitant]
     Active Substance: ASCORBIC ACID\CALCIUM PANTOTHENATE\CYANOCOBALAMIN\NIACINAMIDE\PYRIDOXINE HYDROCHLORIDE\RIBOFLAVIN\TH

REACTIONS (5)
  - Loss of consciousness [Fatal]
  - Muscle rigidity [Fatal]
  - Posterior reversible encephalopathy syndrome [Fatal]
  - Seizure [Fatal]
  - Off label use [Unknown]
